FAERS Safety Report 5710085-8 (Version None)
Quarter: 2008Q2

REPORT INFORMATION
  Report Type: 
  Country: None (occurrence: None)
  Receive Date: 20080418
  Receipt Date: 20070920
  Transmission Date: 20081010
  Serious: No
  Sender: FDA-Public Use
  Company Number: US-ASTRAZENECA-2007UW22149

PATIENT
  Age: 56 Year
  Sex: Female
  Weight: 77.1 kg

DRUGS (2)
  1. TOPROL-XL [Suspect]
     Route: 048
     Dates: start: 19980101
  2. TOPROL-XL [Suspect]
     Route: 048
     Dates: start: 20050101

REACTIONS (4)
  - ABDOMINAL PAIN UPPER [None]
  - DRUG INEFFECTIVE [None]
  - HOT FLUSH [None]
  - VISUAL DISTURBANCE [None]
